FAERS Safety Report 8923388 (Version 1)
Quarter: 2012Q4

REPORT INFORMATION
  Report Type: 
  Country: BR (occurrence: BR)
  Receive Date: 20121123
  Receipt Date: 20121123
  Transmission Date: 20130627
  Serious: Yes (Other)
  Sender: FDA-Public Use
  Company Number: PHHY2012BR105711

PATIENT
  Age: 32 Year
  Sex: Female

DRUGS (3)
  1. TOFRANIL [Suspect]
     Indication: DEPRESSION
     Dosage: 3 DF, daily
     Route: 048
  2. TOFRANIL [Suspect]
     Dosage: 300 mg, UNK
  3. TRILEPTAL [Suspect]
     Route: 048

REACTIONS (5)
  - Withdrawal syndrome [Not Recovered/Not Resolved]
  - Paraesthesia [Not Recovered/Not Resolved]
  - Nausea [Not Recovered/Not Resolved]
  - Dizziness [Not Recovered/Not Resolved]
  - Irritability [Not Recovered/Not Resolved]
